FAERS Safety Report 19835789 (Version 3)
Quarter: 2021Q4

REPORT INFORMATION
  Report Type: Spontaneous
  Country: US (occurrence: US)
  Receive Date: 20210916
  Receipt Date: 20211021
  Transmission Date: 20220304
  Serious: Yes (Other)
  Sender: FDA-Public Use
  Company Number: US-AMGEN-USASP2021140612

PATIENT
  Age: 55 Year
  Sex: Female

DRUGS (21)
  1. OTEZLA [Suspect]
     Active Substance: APREMILAST
     Indication: Psoriatic arthropathy
     Dosage: 30 MILLIGRAM, BID
     Route: 048
     Dates: start: 20210204
  2. DULOXETINE [Concomitant]
     Active Substance: DULOXETINE
     Dosage: UNK
  3. LISINOPRIL [Concomitant]
     Active Substance: LISINOPRIL
     Dosage: UNK
  4. ARMOUR THYROID [Concomitant]
     Active Substance: THYROID, PORCINE
     Dosage: UNK
  5. BUSPIRONE [Concomitant]
     Active Substance: BUSPIRONE HYDROCHLORIDE
     Dosage: UNK
  6. ALBUTEROL [Concomitant]
     Active Substance: ALBUTEROL
     Dosage: UNK
  7. ATOMOXETINE. [Concomitant]
     Active Substance: ATOMOXETINE HYDROCHLORIDE
     Dosage: UNK
  8. ALPRAZOLAM [Concomitant]
     Active Substance: ALPRAZOLAM
     Dosage: UNK
  9. GABAPENTIN [Concomitant]
     Active Substance: GABAPENTIN
  10. HYDROXYZINE HYDROCHLORIDE [Concomitant]
     Active Substance: HYDROXYZINE HYDROCHLORIDE
     Dosage: UNK
  11. TRAZODONE [Concomitant]
     Active Substance: TRAZODONE HYDROCHLORIDE
     Dosage: UNK
  12. TRAMADOL [Concomitant]
     Active Substance: TRAMADOL
     Dosage: UNK
  13. ASPIRIN [Concomitant]
     Active Substance: ASPIRIN
     Dosage: UNK
  14. TYLENOL [Concomitant]
     Active Substance: ACETAMINOPHEN
     Dosage: UNK
  15. SUPER B-100 [AMINOBENZOIC ACID;BIOTIN;CALCIUM PANTOTHENATE;CHOLINE BIT [Concomitant]
     Dosage: UNK
  16. VITAMIN D3 [Concomitant]
     Active Substance: CHOLECALCIFEROL
     Dosage: UNK
  17. DIPHENHYDRAMINE [Concomitant]
     Active Substance: DIPHENHYDRAMINE
     Dosage: UNK
  18. GLUCOSAMINE + CHONDORITIN [Concomitant]
     Dosage: UNK
  19. MELATONIN [Concomitant]
     Active Substance: MELATONIN
     Dosage: UNK
  20. VENTOLIN [Concomitant]
     Active Substance: ALBUTEROL SULFATE
     Dosage: UNK
  21. CLONAZEPAM [Concomitant]
     Active Substance: CLONAZEPAM
     Dosage: UNK

REACTIONS (2)
  - Psoriatic arthropathy [Not Recovered/Not Resolved]
  - Abdominal discomfort [Not Recovered/Not Resolved]

NARRATIVE: CASE EVENT DATE: 20210909
